FAERS Safety Report 7157205-9 (Version None)
Quarter: 2010Q4

REPORT INFORMATION
  Report Type: 
  Country: None (occurrence: None)
  Receive Date: 20101214
  Receipt Date: 20091209
  Transmission Date: 20110411
  Serious: No
  Sender: FDA-Public Use
  Company Number: US-ASTRAZENECA-2009SE31152

PATIENT
  Age: 70 Year
  Sex: Female

DRUGS (5)
  1. CRESTOR [Suspect]
     Route: 048
  2. SIMVASTATIN [Suspect]
  3. BETA BLOCKER [Concomitant]
  4. COUMADIN [Concomitant]
  5. AMNITORONE [Concomitant]

REACTIONS (1)
  - PAIN IN EXTREMITY [None]
